FAERS Safety Report 12097978 (Version 3)
Quarter: 2017Q2

REPORT INFORMATION
  Report Type: Report from Study
  Country: US (occurrence: US)
  Receive Date: 20160221
  Receipt Date: 20170620
  Transmission Date: 20170829
  Serious: No
  Sender: FDA-Public Use
  Company Number: US-AMGEN-USASL2016018311

PATIENT
  Age: 55 Year
  Sex: Male

DRUGS (2)
  1. ENBREL [Suspect]
     Active Substance: ETANERCEPT
     Dosage: UNK
     Route: 065
     Dates: start: 2002
  2. ENBREL [Suspect]
     Active Substance: ETANERCEPT
     Indication: RHEUMATOID ARTHRITIS
     Dosage: UNK
     Route: 065
     Dates: start: 200006

REACTIONS (10)
  - Fall [Unknown]
  - Therapeutic response unexpected [Unknown]
  - Arthropathy [Unknown]
  - Joint hyperextension [Unknown]
  - Nerve compression [Unknown]
  - Irritability [Unknown]
  - Joint lock [Recovering/Resolving]
  - Contusion [Unknown]
  - Erythema [Unknown]
  - Joint warmth [Unknown]

NARRATIVE: CASE EVENT DATE: 201602
